FAERS Safety Report 16673204 (Version 11)
Quarter: 2020Q4

REPORT INFORMATION
  Report Type: Report from Study
  Country: JP (occurrence: JP)
  Receive Date: 20190806
  Receipt Date: 20201012
  Transmission Date: 20210113
  Serious: Yes (Death, Life-Threatening, Hospitalization, Disabling, Other)
  Sender: FDA-Public Use
  Company Number: PHJP2019JP010100

PATIENT
  Age: 18 Year
  Sex: Male
  Weight: 24 kg

DRUGS (81)
  1. ILARIS [Suspect]
     Active Substance: CANAKINUMAB
     Dosage: 48 MG, UNK
     Route: 058
     Dates: start: 20180501
  2. ILARIS [Suspect]
     Active Substance: CANAKINUMAB
     Dosage: 48 MG, UNK
     Route: 058
     Dates: start: 20180529
  3. ILARIS [Suspect]
     Active Substance: CANAKINUMAB
     Dosage: 88 MG, UNK
     Route: 058
     Dates: start: 20181016
  4. ILARIS [Suspect]
     Active Substance: CANAKINUMAB
     Dosage: 88 MG, UNK
     Route: 058
     Dates: start: 20190225
  5. ILARIS [Suspect]
     Active Substance: CANAKINUMAB
     Dosage: 88 MG
     Route: 058
     Dates: start: 20190918
  6. ILARIS [Suspect]
     Active Substance: CANAKINUMAB
     Dosage: 96 MG
     Route: 058
     Dates: start: 20200428
  7. CLARITHROMYCIN. [Concomitant]
     Active Substance: CLARITHROMYCIN
     Indication: PROPHYLAXIS
     Dosage: UNK
     Route: 048
  8. METOLATE [Concomitant]
     Active Substance: METHOTREXATE
     Indication: STILL^S DISEASE
  9. PREDONINE [Concomitant]
     Active Substance: PREDNISOLONE
     Dosage: 15 MG
     Route: 065
     Dates: start: 20181117, end: 20181118
  10. PREDNISOLONE. [Concomitant]
     Active Substance: PREDNISOLONE
     Dosage: 10 MG
     Route: 065
     Dates: start: 20200610
  11. FESIN [Concomitant]
     Indication: FAMILIAL MEDITERRANEAN FEVER
     Dosage: 40 MG
     Route: 065
     Dates: start: 20181119, end: 20181125
  12. VANCOMYCIN [Concomitant]
     Active Substance: VANCOMYCIN
     Indication: PRODUCT USED FOR UNKNOWN INDICATION
     Dosage: 0.8 G
     Route: 065
     Dates: start: 20181219, end: 20190103
  13. LIMETHASON [Concomitant]
     Active Substance: DEXAMETHASONE
     Indication: CYTOMEGALOVIRUS ENTEROCOLITIS
     Dosage: 5 MG
     Route: 065
     Dates: start: 20181119, end: 20181120
  14. LIMETHASON [Concomitant]
     Active Substance: DEXAMETHASONE
     Indication: HAEMOPHAGOCYTIC LYMPHOHISTIOCYTOSIS
     Dosage: 10 MG
     Route: 065
     Dates: start: 20181121, end: 20181126
  15. ILARIS [Suspect]
     Active Substance: CANAKINUMAB
     Dosage: 88 MG, UNK
     Route: 058
     Dates: start: 20180821
  16. ILARIS [Suspect]
     Active Substance: CANAKINUMAB
     Dosage: 88 MG
     Route: 058
     Dates: start: 20190423
  17. PROGRAF [Suspect]
     Active Substance: TACROLIMUS
     Dosage: 2.5 MG
     Route: 048
     Dates: start: 20190105
  18. PREDONINE [Concomitant]
     Active Substance: PREDNISOLONE
     Indication: FAMILIAL MEDITERRANEAN FEVER
     Dosage: 7 MG
     Route: 048
     Dates: start: 20180724, end: 20180820
  19. PREDONINE [Concomitant]
     Active Substance: PREDNISOLONE
     Indication: STILL^S DISEASE
     Dosage: 5 MG
     Route: 048
     Dates: start: 20180821, end: 20181113
  20. PREDNISOLONE. [Concomitant]
     Active Substance: PREDNISOLONE
     Dosage: 40 MG
     Route: 065
     Dates: start: 20200614
  21. ARGAMATE [Concomitant]
     Active Substance: CALCIUM POLYSTYRENE SULFONATE
     Indication: PROPHYLAXIS
     Dosage: 50 G
     Route: 048
     Dates: start: 20190105
  22. LIMETHASON [Concomitant]
     Active Substance: DEXAMETHASONE
     Indication: STILL^S DISEASE
     Dosage: 10 MG
     Route: 065
     Dates: start: 20181130, end: 20181203
  23. LIMETHASON [Concomitant]
     Active Substance: DEXAMETHASONE
     Dosage: 5 MG
     Route: 065
     Dates: start: 20181214, end: 20181214
  24. LIMETHASON [Concomitant]
     Active Substance: DEXAMETHASONE
     Dosage: 10 MG
     Route: 065
     Dates: start: 20181218, end: 20181221
  25. LIMETHASON [Concomitant]
     Active Substance: DEXAMETHASONE
     Dosage: 10 MG
     Route: 065
     Dates: start: 20200622
  26. SANDIMMUN [Concomitant]
     Active Substance: CYCLOSPORINE
     Indication: CYTOMEGALOVIRUS ENTEROCOLITIS
     Dosage: 50 MG
     Route: 042
     Dates: start: 20181119, end: 20181216
  27. NEXIUM [Concomitant]
     Active Substance: ESOMEPRAZOLE MAGNESIUM
     Indication: PROPHYLAXIS
     Dosage: 20 MG
     Route: 048
     Dates: start: 20190105
  28. ILARIS [Suspect]
     Active Substance: CANAKINUMAB
     Indication: STILL^S DISEASE
     Dosage: 48 MG, UNK
     Route: 058
     Dates: start: 20180403
  29. ILARIS [Suspect]
     Active Substance: CANAKINUMAB
     Dosage: 88 MG
     Route: 058
     Dates: start: 20190625
  30. PROGRAF [Suspect]
     Active Substance: TACROLIMUS
     Dosage: 1.5 MG
     Route: 048
     Dates: start: 20180822, end: 20181112
  31. PROGRAF [Suspect]
     Active Substance: TACROLIMUS
     Dosage: UNK
     Route: 065
     Dates: start: 20200706
  32. COLCHICINE. [Concomitant]
     Active Substance: COLCHICINE
     Dosage: 0.5 MG, UNK
     Route: 048
     Dates: start: 20190105
  33. PREDONINE [Concomitant]
     Active Substance: PREDNISOLONE
     Dosage: 18 MG
     Route: 042
     Dates: start: 20190104, end: 20190111
  34. PREDONINE [Concomitant]
     Active Substance: PREDNISOLONE
     Dosage: 18 MG
     Route: 048
     Dates: start: 20190112, end: 20190121
  35. PREDONINE [Concomitant]
     Active Substance: PREDNISOLONE
     Dosage: 14 MG
     Route: 048
     Dates: start: 20190201, end: 20190212
  36. PREDNISOLONE. [Concomitant]
     Active Substance: PREDNISOLONE
     Dosage: 7 MG, QD
     Route: 065
     Dates: start: 20180725
  37. PREDNISOLONE. [Concomitant]
     Active Substance: PREDNISOLONE
     Dosage: 6 MG, QD
     Route: 065
     Dates: start: 20180808
  38. BIO-THREE [Concomitant]
     Active Substance: HERBALS
     Indication: PROPHYLAXIS
     Dosage: 3 G
     Route: 048
     Dates: start: 20181207
  39. SANDIMMUN [Concomitant]
     Active Substance: CYCLOSPORINE
     Indication: HAEMOPHAGOCYTIC LYMPHOHISTIOCYTOSIS
  40. SOL-MELCORT [Concomitant]
     Active Substance: METHYLPREDNISOLONE SODIUM SUCCINATE
     Dosage: 625 MG
     Route: 065
     Dates: start: 20181215, end: 20181217
  41. ILARIS [Suspect]
     Active Substance: CANAKINUMAB
     Dosage: 96 MG
     Route: 058
     Dates: start: 20200303
  42. FERROUS SODIUM CITRATE [Concomitant]
     Active Substance: SODIUM FERROUS CITRATE
     Indication: FAMILIAL MEDITERRANEAN FEVER
     Dosage: UNK
     Route: 048
  43. METOLATE [Concomitant]
     Active Substance: METHOTREXATE
     Indication: FAMILIAL MEDITERRANEAN FEVER
     Dosage: 4 MG, QW
     Route: 048
     Dates: start: 20160202, end: 20181113
  44. PREDONINE [Concomitant]
     Active Substance: PREDNISOLONE
     Dosage: 10 MG
     Route: 065
     Dates: start: 20181113, end: 20181116
  45. LIMETHASON [Concomitant]
     Active Substance: DEXAMETHASONE
     Dosage: 10 MG
     Route: 065
     Dates: start: 20181207, end: 20181210
  46. SANDIMMUN [Concomitant]
     Active Substance: CYCLOSPORINE
     Indication: STILL^S DISEASE
  47. ILARIS [Suspect]
     Active Substance: CANAKINUMAB
     Dosage: 48 MG, UNK
     Route: 058
     Dates: start: 20180620
  48. ILARIS [Suspect]
     Active Substance: CANAKINUMAB
     Dosage: 88 MG, UNK
     Route: 058
     Dates: start: 20180918
  49. ILARIS [Suspect]
     Active Substance: CANAKINUMAB
     Dosage: 88 MG, UNK
     Route: 058
     Dates: start: 20190128
  50. ILARIS [Suspect]
     Active Substance: CANAKINUMAB
     Dosage: 88 MG
     Route: 058
     Dates: start: 20190723
  51. ILARIS [Suspect]
     Active Substance: CANAKINUMAB
     Dosage: 88 MG
     Route: 058
     Dates: start: 20190821
  52. ILARIS [Suspect]
     Active Substance: CANAKINUMAB
     Dosage: 96 MG
     Route: 058
     Dates: start: 20200204
  53. ILARIS [Suspect]
     Active Substance: CANAKINUMAB
     Dosage: 96 MG
     Route: 058
     Dates: start: 20200528
  54. PROGRAF [Suspect]
     Active Substance: TACROLIMUS
     Indication: FAMILIAL MEDITERRANEAN FEVER
     Dosage: UNK
     Route: 048
  55. PROGRAF [Suspect]
     Active Substance: TACROLIMUS
     Dosage: UNK
     Route: 065
     Dates: end: 20200621
  56. COLCHICINE. [Concomitant]
     Active Substance: COLCHICINE
     Indication: FAMILIAL MEDITERRANEAN FEVER
     Dosage: 0.5 MG, UNK
     Route: 048
     Dates: start: 20170916, end: 20181121
  57. PREDNISOLONE. [Concomitant]
     Active Substance: PREDNISOLONE
     Indication: FAMILIAL MEDITERRANEAN FEVER
     Dosage: UNK
     Route: 048
  58. VENILON [Concomitant]
     Active Substance: HUMAN IMMUNOGLOBULIN G
     Indication: STILL^S DISEASE
     Dosage: 15 G
     Route: 065
     Dates: start: 20181126, end: 20181126
  59. LIMETHASON [Concomitant]
     Active Substance: DEXAMETHASONE
     Dosage: 7.5 MG
     Route: 065
     Dates: start: 20181225, end: 20181225
  60. SOL-MELCORT [Concomitant]
     Active Substance: METHYLPREDNISOLONE SODIUM SUCCINATE
     Indication: CYTOMEGALOVIRUS ENTEROCOLITIS
     Dosage: 625 MG
     Route: 042
     Dates: start: 20181127, end: 20181129
  61. SOL-MELCORT [Concomitant]
     Active Substance: METHYLPREDNISOLONE SODIUM SUCCINATE
     Indication: HAEMOPHAGOCYTIC LYMPHOHISTIOCYTOSIS
     Dosage: 625 MG
     Route: 065
     Dates: start: 20181204, end: 20181206
  62. FAMOTIDINE. [Concomitant]
     Active Substance: FAMOTIDINE
     Indication: PRODUCT USED FOR UNKNOWN INDICATION
     Dosage: 10 MG
     Route: 048
     Dates: start: 20181117, end: 20181126
  63. ILARIS [Suspect]
     Active Substance: CANAKINUMAB
     Indication: FAMILIAL MEDITERRANEAN FEVER
     Dosage: 48 MG, UNK
     Route: 058
     Dates: start: 20180305
  64. ILARIS [Suspect]
     Active Substance: CANAKINUMAB
     Dosage: 88 MG
     Route: 058
     Dates: start: 20190325
  65. ILARIS [Suspect]
     Active Substance: CANAKINUMAB
     Dosage: 88 MG
     Route: 058
     Dates: start: 20191016
  66. ILARIS [Suspect]
     Active Substance: CANAKINUMAB
     Dosage: 92 MG
     Route: 058
     Dates: start: 20200107
  67. PROGRAF [Suspect]
     Active Substance: TACROLIMUS
     Indication: STILL^S DISEASE
     Dosage: 2 MG
     Route: 048
     Dates: start: 20180711, end: 20180821
  68. FEBURIC [Concomitant]
     Active Substance: FEBUXOSTAT
     Indication: FAMILIAL MEDITERRANEAN FEVER
     Dosage: UNK
     Route: 048
  69. CALFINA [Concomitant]
     Indication: PROPHYLAXIS
     Dosage: 1 UG
     Route: 048
     Dates: start: 20181117, end: 20181126
  70. LIMETHASON [Concomitant]
     Active Substance: DEXAMETHASONE
     Dosage: 5 MG
     Route: 065
     Dates: start: 20181226, end: 20181228
  71. SOL-MELCORT [Concomitant]
     Active Substance: METHYLPREDNISOLONE SODIUM SUCCINATE
     Indication: STILL^S DISEASE
     Dosage: 625 MG
     Route: 065
     Dates: start: 20181211, end: 20181213
  72. ILARIS [Suspect]
     Active Substance: CANAKINUMAB
     Dosage: 48 MG, UNK
     Route: 058
     Dates: start: 20180724
  73. ILARIS [Suspect]
     Active Substance: CANAKINUMAB
     Dosage: 88 MG, UNK
     Route: 058
     Dates: start: 20190108
  74. ILARIS [Suspect]
     Active Substance: CANAKINUMAB
     Dosage: 88 MG
     Route: 058
     Dates: start: 20190523
  75. ILARIS [Suspect]
     Active Substance: CANAKINUMAB
     Dosage: 150 MG
     Route: 058
     Dates: start: 20200701, end: 20200701
  76. PREDONINE [Concomitant]
     Active Substance: PREDNISOLONE
     Dosage: 16 MG
     Route: 048
     Dates: start: 20190122, end: 20190131
  77. ILARIS [Suspect]
     Active Substance: CANAKINUMAB
     Dosage: 88 MG
     Route: 058
     Dates: start: 20191113
  78. ILARIS [Suspect]
     Active Substance: CANAKINUMAB
     Dosage: 88 MG
     Route: 058
     Dates: start: 20191211
  79. ILARIS [Suspect]
     Active Substance: CANAKINUMAB
     Dosage: 96 MG
     Route: 058
     Dates: start: 20200331
  80. PREDONINE [Concomitant]
     Active Substance: PREDNISOLONE
     Dosage: 20 MG
     Route: 042
     Dates: start: 20181229, end: 20190104
  81. SOL-MELCORT [Concomitant]
     Active Substance: METHYLPREDNISOLONE SODIUM SUCCINATE
     Dosage: 625 MG
     Route: 065
     Dates: start: 20181222, end: 20181224

REACTIONS (38)
  - Cytomegalovirus enterocolitis [Recovered/Resolved]
  - Disease recurrence [Unknown]
  - Stoma complication [Unknown]
  - Haemophagocytic lymphohistiocytosis [Recovered/Resolved]
  - Dehydration [Unknown]
  - Abdominal pain [Recovering/Resolving]
  - Blood immunoglobulin M increased [Unknown]
  - Blood culture positive [Recovered/Resolved]
  - Inflammation [Unknown]
  - Lymphadenopathy [Unknown]
  - Pyrexia [Unknown]
  - Pancytopenia [Unknown]
  - Bacteraemia [Recovered/Resolved]
  - Inflammatory bowel disease [Not Recovered/Not Resolved]
  - Intestinal ulcer [Unknown]
  - Pyrexia [Recovering/Resolving]
  - Cerebral haemorrhage [Fatal]
  - Pyrexia [Recovered/Resolved]
  - Hypophagia [Unknown]
  - Concomitant disease aggravated [Recovered/Resolved]
  - Device related infection [Recovered/Resolved]
  - Mucormycosis [Unknown]
  - Therapeutic product effect incomplete [Unknown]
  - Diarrhoea [Unknown]
  - Blood immunoglobulin G increased [Unknown]
  - Intestinal perforation [Recovered/Resolved]
  - Still^s disease [Unknown]
  - Bacteraemia [Recovered/Resolved]
  - Intestinal perforation [Recovered/Resolved]
  - Cytomegalovirus gastrointestinal ulcer [Recovered/Resolved]
  - Haemophagocytic lymphohistiocytosis [Recovered/Resolved]
  - Brain herniation [Fatal]
  - Haemoglobin decreased [Unknown]
  - Serum ferritin increased [Recovering/Resolving]
  - Fluid intake reduced [Unknown]
  - Haematochezia [Recovering/Resolving]
  - Hepatomegaly [Unknown]
  - Haemorrhage [Unknown]

NARRATIVE: CASE EVENT DATE: 20181108
